FAERS Safety Report 4507242-5 (Version None)
Quarter: 2004Q4

REPORT INFORMATION
  Report Type: 
  Country: None (occurrence: None)
  Receive Date: 20041025
  Receipt Date: 20040527
  Transmission Date: 20050328
  Serious: Yes (Hospitalization)
  Sender: FDA-Public Use
  Company Number: US-JNJFOC-20040506837

PATIENT
  Age: 50 Year
  Sex: Female

DRUGS (16)
  1. INFLIXIMAB (INFLIXIMAB, RECOMBINANT) LYOPHILIZED POWDER [Suspect]
     Indication: RHEUMATOID ARTHRITIS
     Dosage: INTRAVENOUS
     Route: 042
     Dates: start: 20010221
  2. PRINIVIL [Concomitant]
  3. AMARYL (METHADONE HYDROCHLORIDE) [Concomitant]
  4. ASPIRIN [Concomitant]
  5. SENOKOT (SENNA FRUIT) TABLETS [Concomitant]
  6. CELEBREX [Concomitant]
  7. NEXIUM [Concomitant]
  8. DARVOCET-N 100 [Concomitant]
  9. ACTONEL (RISEDRONATE SODIUM) TABLETS [Concomitant]
  10. OCUVITE (OCUVITE) TABLETS [Concomitant]
  11. PERSANTINE (DIPYRIDAMOLE) TABLETS [Concomitant]
  12. METHOTRXATE SODIUM (METHORTREXATE SODIUM) SOLUTION [Concomitant]
  13. FOLIC ACID (FOLIC ACID) TABLETS [Concomitant]
  14. CALCIUM PLUS VITAMIN D (CALCIUM) TABLETS [Concomitant]
  15. PREDNISONE [Concomitant]
  16. ADALIMUMAB (ALL OTHER THERAPEUTIC PRODUCTS) [Concomitant]

REACTIONS (1)
  - RHEUMATOID ARTHRITIS [None]
